FAERS Safety Report 8044637-X (Version None)
Quarter: 2012Q1

REPORT INFORMATION
  Report Type: 
  Country: None (occurrence: None)
  Receive Date: 20120113
  Receipt Date: 20120109
  Transmission Date: 20120608
  Serious: Yes (Other)
  Sender: FDA-Public Use
  Company Number: US-CELGENEUS-163-21880-11081555

PATIENT
  Sex: Female
  Weight: 73.548 kg

DRUGS (14)
  1. HYDROXYCHLOROQUINE SULFATE [Concomitant]
     Dosage: 200 MILLIGRAM
     Route: 065
  2. CLONIDINE [Concomitant]
     Route: 065
  3. REVLIMID [Suspect]
     Indication: MULTIPLE MYELOMA
     Dosage: 15 MILLIGRAM
     Route: 048
     Dates: start: 20110201
  4. ASPIRIN [Concomitant]
     Dosage: 81 MILLIGRAM
     Route: 065
  5. VITAMIN B COMPLEX CAP [Concomitant]
     Indication: SUPPLEMENTATION THERAPY
     Route: 065
  6. VITAMIN D [Concomitant]
     Indication: VITAMIN SUPPLEMENTATION
     Route: 065
  7. VITAMIN C [Concomitant]
     Indication: VITAMIN SUPPLEMENTATION
     Route: 065
  8. MAGIC MOUTHWASH [Concomitant]
  9. FLORINEF [Concomitant]
     Dosage: .1 MILLIGRAM
     Route: 065
  10. LOVAZA [Concomitant]
     Route: 065
  11. M.V.I. [Concomitant]
     Indication: VITAMIN SUPPLEMENTATION
     Route: 065
  12. ANDROCORT [Concomitant]
     Dosage: 1 MILLIGRAM
     Route: 065
  13. DEXAMETHASONE TAB [Concomitant]
     Indication: MULTIPLE MYELOMA
     Dosage: 4 MILLIGRAM
     Route: 065
  14. LORAZEPAM [Concomitant]
     Indication: ANXIETY
     Dosage: 1 MILLIGRAM
     Route: 065

REACTIONS (1)
  - SYSTEMIC LUPUS ERYTHEMATOSUS [None]
